FAERS Safety Report 8138066-8 (Version None)
Quarter: 2012Q1

REPORT INFORMATION
  Report Type: 
  Country: None (occurrence: None)
  Receive Date: 20120215
  Receipt Date: 20120206
  Transmission Date: 20120608
  Serious: Yes (Other)
  Sender: FDA-Public Use
  Company Number: FR-JNJFOC-20120204675

PATIENT
  Age: 74 Year
  Sex: Male
  Weight: 59 kg

DRUGS (1)
  1. XARELTO [Suspect]
     Indication: KNEE ARTHROPLASTY
     Route: 048
     Dates: start: 20120110, end: 20120111

REACTIONS (1)
  - DEEP VEIN THROMBOSIS [None]
